FAERS Safety Report 18201053 (Version 1)
Quarter: 2020Q3

REPORT INFORMATION
  Report Type: Spontaneous
  Country: US (occurrence: US)
  Receive Date: 20200826
  Receipt Date: 20200826
  Transmission Date: 20201103
  Serious: Yes (Other)
  Sender: FDA-Public Use
  Company Number: US-BEH-2020121740

PATIENT
  Sex: Female

DRUGS (9)
  1. HIZENTRA [Suspect]
     Active Substance: HUMAN IMMUNOGLOBULIN G
     Indication: IMMUNODEFICIENCY COMMON VARIABLE
     Dosage: 16 GRAM, BIW
     Route: 058
  2. METOLAZONE. [Concomitant]
     Active Substance: METOLAZONE
     Dosage: 5 MILLIGRAM
     Route: 065
  3. ONDANSETRON [Concomitant]
     Active Substance: ONDANSETRON
     Dosage: 4 MILLIGRAM
     Route: 065
  4. CLORAZEPATE [Concomitant]
     Active Substance: CLORAZEPATE DIPOTASSIUM
     Dosage: 7.5 MILLIGRAM
     Route: 065
  5. FUROSEMIDE. [Concomitant]
     Active Substance: FUROSEMIDE
     Dosage: 20 MILLIGRAM
     Route: 065
  6. PRIMIDONE. [Concomitant]
     Active Substance: PRIMIDONE
     Dosage: 250 MILLIGRAM
     Route: 065
  7. HIZENTRA [Suspect]
     Active Substance: HUMAN IMMUNOGLOBULIN G
     Dosage: UNK
     Route: 058
  8. ADVAIR HFA [Concomitant]
     Active Substance: FLUTICASONE PROPIONATE\SALMETEROL XINAFOATE
     Dosage: 230?21 MCG
     Route: 065
  9. VRAYLAR [Concomitant]
     Active Substance: CARIPRAZINE
     Dosage: 1.5 MILLIGRAM
     Route: 065

REACTIONS (3)
  - Back pain [Unknown]
  - Fall [Unknown]
  - Spinal fracture [Unknown]
